FAERS Safety Report 7942925-6 (Version None)
Quarter: 2011Q4

REPORT INFORMATION
  Report Type: 
  Country: None (occurrence: None)
  Receive Date: 20111128
  Receipt Date: 20111122
  Transmission Date: 20120403
  Serious: Yes (Hospitalization)
  Sender: FDA-Public Use
  Company Number: US-MERCK-1102USA02323

PATIENT
  Sex: Female

DRUGS (4)
  1. FOSAMAX [Suspect]
     Indication: OSTEOPENIA
     Route: 048
     Dates: start: 20020701, end: 20080301
  2. FOSAMAX [Suspect]
     Route: 048
     Dates: start: 20080301, end: 20090401
  3. BUSPAR [Concomitant]
     Indication: ANXIETY
     Route: 065
     Dates: start: 19900101
  4. BUSPAR [Concomitant]
     Indication: DEPRESSION
     Route: 065
     Dates: start: 19900101

REACTIONS (7)
  - BLOOD CHOLESTEROL INCREASED [None]
  - GALLBLADDER DISORDER [None]
  - LOW TURNOVER OSTEOPATHY [None]
  - OVARIAN NEOPLASM [None]
  - FEMUR FRACTURE [None]
  - IMPAIRED HEALING [None]
  - VITAMIN D DEFICIENCY [None]
